FAERS Safety Report 7314101-1 (Version None)
Quarter: 2011Q1

REPORT INFORMATION
  Report Type: 
  Country: None (occurrence: None)
  Receive Date: 20110225
  Receipt Date: 20100524
  Transmission Date: 20110831
  Serious: No
  Sender: FDA-Public Use
  Company Number: US-MYLANLABS-2010S1007840

PATIENT
  Age: 25 Year
  Sex: Male
  Weight: 83 kg

DRUGS (3)
  1. AMNESTEEM [Suspect]
     Indication: ACNE
     Route: 048
     Dates: start: 20100223, end: 20100323
  2. FISH OIL [Concomitant]
  3. MULTI-VITAMIN [Concomitant]

REACTIONS (2)
  - HEPATITIS C [None]
  - LIVER FUNCTION TEST ABNORMAL [None]
